FAERS Safety Report 10100352 (Version 1)
Quarter: 2014Q2

REPORT INFORMATION
  Report Type: Spontaneous
  Country: BE (occurrence: BE)
  Receive Date: 20140423
  Receipt Date: 20140423
  Transmission Date: 20141212
  Serious: Yes (Hospitalization)
  Sender: FDA-Public Use
  Company Number: PHHY2014BE048664

PATIENT
  Age: 61 Year
  Sex: Female

DRUGS (9)
  1. IBUPROFEN [Suspect]
     Indication: PROCEDURAL PAIN
  2. VOLTAREN [Interacting]
     Indication: PROCEDURAL PAIN
     Dosage: 75 MG, UNK
  3. MANIPREX [Interacting]
     Indication: BIPOLAR DISORDER
     Dosage: 250 MG, TID
  4. SERTRALINE EG [Concomitant]
     Dosage: 100 MG, UNK
  5. ZYPREXA [Concomitant]
     Dosage: 2.5 MG, UNK
  6. TRAZODONE [Concomitant]
     Dosage: 100 MG, UNK
  7. TEMESTA [Concomitant]
     Dosage: 2.5 MG, UNK
  8. FENOGAL LIDOSE [Concomitant]
     Dosage: 267 MG, UNK
  9. NOVOMIX [Concomitant]

REACTIONS (15)
  - Renal failure acute [Recovered/Resolved]
  - Diabetes mellitus [Unknown]
  - Coma [Unknown]
  - Loss of consciousness [Unknown]
  - Blood urea increased [Unknown]
  - Agitation [Unknown]
  - Dehydration [Unknown]
  - Hyperglycaemia [Recovered/Resolved]
  - Restlessness [Unknown]
  - Hypercalcaemia [Recovered/Resolved]
  - Hypoglycaemia [Recovered/Resolved]
  - Toxicity to various agents [Recovered/Resolved]
  - Drug interaction [Unknown]
  - Blood sodium increased [Unknown]
  - Blood osmolarity increased [Unknown]
